FAERS Safety Report 5025904-0 (Version None)
Quarter: 2006Q2

REPORT INFORMATION
  Report Type: 
  Country: None (occurrence: None)
  Receive Date: 20060614
  Receipt Date: 20060608
  Transmission Date: 20061013
  Serious: Yes (Death, Hospitalization)
  Sender: FDA-Public Use
  Company Number: US-JNJFOC-20040910066

PATIENT
  Sex: Female

DRUGS (6)
  1. LEVAQUIN [Suspect]
     Indication: PNEUMONIA
     Route: 048
     Dates: start: 20031229, end: 20040105
  2. LEVAQUIN [Suspect]
     Indication: BRONCHITIS
     Route: 048
     Dates: start: 20031229, end: 20040105
  3. LEVAQUIN [Suspect]
     Route: 042
  4. LASIX [Concomitant]
     Indication: FLUID RETENTION
  5. MUSSINEX [Concomitant]
     Indication: SINUSITIS
  6. CLARITIN [Concomitant]
     Indication: SINUSITIS

REACTIONS (5)
  - CONGESTIVE CARDIOMYOPATHY [None]
  - HEART RATE INCREASED [None]
  - INSOMNIA [None]
  - NAUSEA [None]
  - RENAL FAILURE [None]
